FAERS Safety Report 20712550 (Version 1)
Quarter: 2022Q2

REPORT INFORMATION
  Report Type: Spontaneous
  Country: NL (occurrence: NL)
  Receive Date: 20220415
  Receipt Date: 20220415
  Transmission Date: 20220720
  Serious: Yes (Other)
  Sender: FDA-Public Use
  Company Number: None

PATIENT
  Age: 36 Year
  Sex: Male
  Weight: 92 kg

DRUGS (4)
  1. OXYCODONE [Suspect]
     Active Substance: OXYCODONE
     Indication: Back pain
     Dosage: 4, OXYCODON CAPSULE  5MG / BRAND NAME NOT SPECIFIED, THERAPY END DATE : ASKU, UNIT DOSE :1 DF, MEDIC
     Dates: start: 20190728
  2. ACETAMINOPHEN [Concomitant]
     Active Substance: ACETAMINOPHEN
     Dosage: 1000 MG, PARACETAMOL 1000MG / BRAND NAME NOT SPECIFIED, THERAPY START DATE AND END DATE : ASKU
  3. NAPROXEN [Concomitant]
     Active Substance: NAPROXEN
     Dosage: 250 MG, NAPROXEN TABLET MSR 250MG / BRAND NAME NOT SPECIFIED, THERAPY START DATE AND END DATE : ASKU
  4. OMEPRAZOLE [Concomitant]
     Active Substance: OMEPRAZOLE
     Dosage: 40 MG, OMEPRAZOL MSR 40MG / BRAND NAME NOT SPECIFIED, THERAPY START DATE AND END DATE : ASKU

REACTIONS (7)
  - Erectile dysfunction [Not Recovered/Not Resolved]
  - Muscle spasms [Not Recovered/Not Resolved]
  - Thirst [Not Recovered/Not Resolved]
  - Diarrhoea [Recovering/Resolving]
  - Abdominal discomfort [Recovering/Resolving]
  - Dry mouth [Not Recovered/Not Resolved]
  - Nausea [Recovering/Resolving]

NARRATIVE: CASE EVENT DATE: 20190801
